FAERS Safety Report 6759859-5 (Version None)
Quarter: 2010Q2

REPORT INFORMATION
  Report Type: 
  Country: None (occurrence: None)
  Receive Date: 20100524
  Receipt Date: 20100127
  Transmission Date: 20101027
  Serious: No
  Sender: FDA-Public Use
  Company Number: 005930

PATIENT
  Sex: Female

DRUGS (1)
  1. CIMZIA [Suspect]
     Indication: CROHN'S DISEASE
     Dosage: (400 MG DOSING FOR THE INDUCTION PHASE) SUBCUTANEOUS)
     Route: 058

REACTIONS (2)
  - INJECTION SITE DISCOLOURATION [None]
  - INJECTION SITE SWELLING [None]
